FAERS Safety Report 17401367 (Version 1)
Quarter: 2020Q1

REPORT INFORMATION
  Report Type: Spontaneous
  Country: CH (occurrence: CH)
  Receive Date: 20200211
  Receipt Date: 20200211
  Transmission Date: 20200409
  Serious: Yes (Other)
  Sender: FDA-Public Use
  Company Number: NVSC2020CH034927

PATIENT
  Sex: Female

DRUGS (1)
  1. CARBOPLATIN. [Suspect]
     Active Substance: CARBOPLATIN
     Indication: CERVIX CARCINOMA STAGE IV
     Route: 065

REACTIONS (4)
  - Anaphylactic reaction [Unknown]
  - Product use in unapproved indication [Unknown]
  - Renal failure [Unknown]
  - Cervix carcinoma recurrent [Unknown]
